FAERS Safety Report 7504050-8 (Version None)
Quarter: 2011Q2

REPORT INFORMATION
  Report Type: 
  Country: None (occurrence: None)
  Receive Date: 20110525
  Receipt Date: 20110523
  Transmission Date: 20111010
  Serious: Yes (Other)
  Sender: FDA-Public Use
  Company Number: US-TEVA-283105USA

PATIENT
  Sex: Female

DRUGS (4)
  1. ORENCIA [Suspect]
     Indication: RHEUMATOID ARTHRITIS
     Dosage: 17.8571 MILLIGRAM;
     Route: 030
     Dates: start: 20080523
  2. HEPAGRISEVIT FORTE-N               /01079901/ [Concomitant]
     Dates: start: 20020101
  3. THYROID TAB [Concomitant]
     Dates: start: 19720101
  4. METHOTREXATE [Suspect]
     Indication: RHEUMATOID ARTHRITIS
     Dates: start: 20040101

REACTIONS (1)
  - BASAL CELL CARCINOMA [None]
